FAERS Safety Report 13785405 (Version 1)
Quarter: 2017Q3

REPORT INFORMATION
  Report Type: Spontaneous
  Country: US (occurrence: US)
  Receive Date: 20170724
  Receipt Date: 20170724
  Transmission Date: 20171127
  Serious: Yes (Other)
  Sender: FDA-Public Use
  Company Number: None

PATIENT
  Age: 74 Year
  Sex: Female
  Weight: 65.25 kg

DRUGS (19)
  1. ULTRAM [Concomitant]
     Active Substance: TRAMADOL HYDROCHLORIDE
  2. ECOTRIN [Concomitant]
     Active Substance: ASPIRIN
  3. XIIDRA [Suspect]
     Active Substance: LIFITEGRAST
     Indication: DRY EYE
     Dosage: ?          QUANTITY:1 DROP(S);?
     Route: 047
  4. MAXIDE-25 [Concomitant]
  5. NIZORAL [Concomitant]
     Active Substance: KETOCONAZOLE
  6. XIIDRA [Concomitant]
     Active Substance: LIFITEGRAST
  7. SIMETHICONE (DIMETHICONE) [Concomitant]
     Active Substance: DIMETHICONE
  8. CARTIA XT [Concomitant]
     Active Substance: DILTIAZEM HYDROCHLORIDE
  9. CORTIBAUM [Concomitant]
  10. VITAMIN D3 [Concomitant]
     Active Substance: CHOLECALCIFEROL
  11. ATROVENT [Concomitant]
     Active Substance: IPRATROPIUM BROMIDE
  12. BENEFIBER [Concomitant]
     Active Substance: STARCH, WHEAT
  13. KENALOG [Concomitant]
     Active Substance: TRIAMCINOLONE ACETONIDE
  14. RETIN-A [Concomitant]
     Active Substance: TRETINOIN
  15. VOLTAREN [Concomitant]
     Active Substance: DICLOFENAC SODIUM
  16. AMITIZA [Concomitant]
     Active Substance: LUBIPROSTONE
  17. EPIPEN [Concomitant]
     Active Substance: EPINEPHRINE
  18. NITROSTAT [Concomitant]
     Active Substance: NITROGLYCERIN
  19. ALIGN PROBIOTIC [Concomitant]

REACTIONS (3)
  - Lacrimation increased [None]
  - Vision blurred [None]
  - Eye irritation [None]

NARRATIVE: CASE EVENT DATE: 20170517
